FAERS Safety Report 10268131 (Version 3)
Quarter: 2014Q3

REPORT INFORMATION
  Report Type: Spontaneous
  Country: GB (occurrence: GB)
  Receive Date: 20140630
  Receipt Date: 20140818
  Transmission Date: 20150326
  Serious: Yes (Hospitalization, Other)
  Sender: FDA-Public Use
  Company Number: GB-TEVA-489866ISR

PATIENT
  Age: 58 Year
  Sex: Female

DRUGS (8)
  1. SANDOZ LTD VALSARTAN [Suspect]
     Active Substance: VALSARTAN
     Indication: HYPERTENSION
     Dates: end: 20140207
  2. RAMIPRIL. [Suspect]
     Active Substance: RAMIPRIL
     Indication: HYPERTENSION
     Route: 048
  3. VALSARTAN. [Interacting]
     Active Substance: VALSARTAN
  4. TEVA UK BISOPROLOL [Concomitant]
     Active Substance: BISOPROLOL
     Indication: PRODUCT USED FOR UNKNOWN INDICATION
  5. VALSARTAN. [Interacting]
     Active Substance: VALSARTAN
  6. ACTAVIS GROUP PTC IRBESARTAN [Suspect]
     Active Substance: IRBESARTAN
     Indication: HYPERTENSION
  7. VALSARTAN. [Interacting]
     Active Substance: VALSARTAN
     Dates: start: 20120403, end: 20120430
  8. SANDOZ LTD RAMIPRIL [Concomitant]
     Indication: HYPERTENSION

REACTIONS (27)
  - Tinnitus [Unknown]
  - Muscle strain [Unknown]
  - Drug interaction [Unknown]
  - Malaise [Unknown]
  - Restlessness [Unknown]
  - Fear [Unknown]
  - Oedema mouth [Unknown]
  - Drug ineffective [Unknown]
  - Feeling abnormal [Unknown]
  - White blood cell count increased [Unknown]
  - Swollen tongue [Unknown]
  - Tenderness [Unknown]
  - Troponin increased [Unknown]
  - Ear discomfort [Unknown]
  - Nasal discomfort [Unknown]
  - Hepatic enzyme increased [Unknown]
  - Abdominal discomfort [Unknown]
  - Chest pain [Unknown]
  - Nasal dryness [Unknown]
  - Rectal haemorrhage [Unknown]
  - Cell marker increased [Unknown]
  - Joint stiffness [Unknown]
  - Weight increased [Unknown]
  - Gastrointestinal oedema [Unknown]
  - Alopecia [Unknown]
  - Myocardial infarction [Unknown]
  - Abdominal distension [Unknown]
